FAERS Safety Report 4953741-1 (Version None)
Quarter: 2006Q1

REPORT INFORMATION
  Report Type: 
  Country: None (occurrence: None)
  Receive Date: 20060323
  Receipt Date: 20060323
  Transmission Date: 20060701
  Serious: Yes (Other)
  Sender: FDA-Public Use
  Company Number: None

PATIENT
  Sex: Female
  Weight: 52.6173 kg

DRUGS (7)
  1. CARBOPLATIN 450 MG /450 ML BEDFORD LABORATORIES [Suspect]
     Indication: NON-SMALL CELL LUNG CANCER
     Dosage: 170 MG WEEKLY IV DRIP
     Route: 041
     Dates: start: 20060208, end: 20060315
  2. PACLITAXEL 300 MG/50 ML MAYNE PHARMA [Suspect]
     Dosage: 120 MG WEEKLY IV DRIP
     Route: 041
     Dates: start: 20060208, end: 20060315
  3. ONDANSETRON [Concomitant]
  4. DEXAMETHASONE TAB [Concomitant]
  5. FAMOTIINE [Concomitant]
  6. ACETAMINOPHEN [Concomitant]
  7. DIPHENHYDRAMINE [Concomitant]

REACTIONS (5)
  - CHEST DISCOMFORT [None]
  - COUGH [None]
  - DYSPNOEA [None]
  - INFUSION RELATED REACTION [None]
  - URTICARIA [None]
